FAERS Safety Report 7068074-X (Version None)
Quarter: 2010Q4

REPORT INFORMATION
  Report Type: 
  Country: None (occurrence: None)
  Receive Date: 20101028
  Receipt Date: 20101020
  Transmission Date: 20110411
  Serious: Yes (Other)
  Sender: FDA-Public Use
  Company Number: BR-ROCHE-709598

PATIENT
  Sex: Female
  Weight: 52.2 kg

DRUGS (15)
  1. TOCILIZUMAB [Suspect]
     Indication: RHEUMATOID ARTHRITIS
     Dosage: FORM: INFUSION
     Route: 042
     Dates: start: 20091013, end: 20091013
  2. TOCILIZUMAB [Suspect]
     Route: 042
     Dates: start: 20100203, end: 20100203
  3. TOCILIZUMAB [Suspect]
     Route: 042
     Dates: start: 20100303, end: 20100303
  4. TOCILIZUMAB [Suspect]
     Route: 042
     Dates: start: 20100330, end: 20100330
  5. TOCILIZUMAB [Suspect]
     Route: 042
     Dates: start: 20100428, end: 20100428
  6. TOCILIZUMAB [Suspect]
     Route: 042
     Dates: start: 20100528, end: 20100528
  7. TOCILIZUMAB [Suspect]
     Route: 042
     Dates: start: 20100623
  8. METHOTREXATE [Concomitant]
  9. RANITIDINE [Concomitant]
  10. CALCIUM [Concomitant]
  11. DIAZEPAM [Concomitant]
  12. ACTONEL [Concomitant]
  13. DEFLAZACORT [Concomitant]
  14. TRAMADOL HCL [Concomitant]
  15. CELEBRA [Concomitant]

REACTIONS (8)
  - BLOOD GLUCOSE DECREASED [None]
  - DIZZINESS [None]
  - DRUG INEFFECTIVE [None]
  - FALL [None]
  - NAUSEA [None]
  - PAIN [None]
  - TREMOR [None]
  - WEIGHT INCREASED [None]
